FAERS Safety Report 9147106 (Version 3)
Quarter: 2014Q3

REPORT INFORMATION
  Report Type: Spontaneous
  Country: US (occurrence: US)
  Receive Date: 20130307
  Receipt Date: 20140929
  Transmission Date: 20150326
  Serious: Yes (Hospitalization, Other)
  Sender: FDA-Public Use
  Company Number: US-BAYER-2013-025741

PATIENT
  Age: 31 Year
  Sex: Female
  Weight: 48.98 kg

DRUGS (3)
  1. MIRENA [Suspect]
     Active Substance: LEVONORGESTREL
     Indication: CONTRACEPTION
     Dosage: 20 MCG/24HR, CONT
     Route: 015
     Dates: start: 20091110, end: 20110209
  2. FOLIC ACID. [Concomitant]
     Active Substance: FOLIC ACID
     Dosage: UNK
     Route: 048
  3. FLUOXETINE [Concomitant]
     Active Substance: FLUOXETINE\FLUOXETINE HYDROCHLORIDE
     Dosage: UNK
     Route: 048
     Dates: start: 2008

REACTIONS (10)
  - Bladder perforation [None]
  - Injury [None]
  - Emotional distress [None]
  - Scar [None]
  - Extravasation of urine [None]
  - Pain [None]
  - Gastrointestinal necrosis [None]
  - Depression [Not Recovered/Not Resolved]
  - Uterine perforation [None]
  - Pain [None]

NARRATIVE: CASE EVENT DATE: 2010
